FAERS Safety Report 13776155 (Version 1)
Quarter: 2017Q3

REPORT INFORMATION
  Report Type: Spontaneous
  Country: US (occurrence: US)
  Receive Date: 20170721
  Receipt Date: 20170721
  Transmission Date: 20171127
  Serious: Yes (Death, Other)
  Sender: FDA-Public Use
  Company Number: US-CORDEN PHARMA LATINA S.P.A.-US-2017COR000161

PATIENT
  Age: 7 Year
  Sex: Male

DRUGS (2)
  1. THIOTEPA. [Suspect]
     Active Substance: THIOTEPA
     Indication: INTRACRANIAL GERM CELL TUMOUR
     Dosage: UNK, THREE CYCLES FOR TWO DAYS/CYCLE
  2. ETOPOSIDE. [Suspect]
     Active Substance: ETOPOSIDE
     Indication: INTRACRANIAL GERM CELL TUMOUR
     Dosage: UNK, QD FOR 10 DAYS, THREE CYCLES
     Route: 048

REACTIONS (3)
  - Gliosis [Fatal]
  - Central nervous system necrosis [Fatal]
  - Neovascularisation [Fatal]
